FAERS Safety Report 4618664-6 (Version None)
Quarter: 2005Q2

REPORT INFORMATION
  Report Type: 
  Country: None (occurrence: None)
  Receive Date: 20050311
  Receipt Date: 20041104
  Transmission Date: 20051028
  Serious: No
  Sender: FDA-Public Use
  Company Number: 2004-BP-09119BP

PATIENT
  Age: 64 Year
  Sex: Female

DRUGS (6)
  1. SPIRIVA [Suspect]
     Indication: CHRONIC OBSTRUCTIVE PULMONARY DISEASE
     Dosage: 18 MCG (18 MCG), IH
     Route: 055
     Dates: start: 20040923
  2. VANTIN [Suspect]
     Dosage: 400 MG (200 MG, 2 IN 1 D)
     Dates: start: 20040923, end: 20041001
  3. DUONEB [Concomitant]
  4. ADVAIR DISKUS 100/50 [Concomitant]
  5. PREDNISONE [Concomitant]
  6. MEGASTROL ACETATE (MEGESTROL) [Concomitant]

REACTIONS (3)
  - ABDOMINAL DISTENSION [None]
  - RASH [None]
  - WEIGHT INCREASED [None]
